FAERS Safety Report 8934923 (Version 1)
Quarter: 2012Q4

REPORT INFORMATION
  Report Type: 
  Country: US (occurrence: US)
  Receive Date: 20121129
  Receipt Date: 20121129
  Transmission Date: 20130627
  Serious: Yes (Hospitalization)
  Sender: FDA-Public Use
  Company Number: US-ACTELION-A-US2012-75012

PATIENT
  Age: 80 Year
  Sex: Male

DRUGS (2)
  1. TRACLEER [Suspect]
     Indication: PULMONARY ARTERIAL HYPERTENSION
     Dosage: UNK
     Route: 048
  2. COUMADIN [Concomitant]

REACTIONS (7)
  - Renal failure [Unknown]
  - Dehydration [Unknown]
  - Cold sweat [Unknown]
  - Vomiting [Unknown]
  - Diarrhoea [Unknown]
  - Dizziness postural [Unknown]
  - Orthostatic hypotension [Unknown]
